FAERS Safety Report 11515777 (Version 2)
Quarter: 2015Q3

REPORT INFORMATION
  Report Type: Spontaneous
  Country: US (occurrence: None)
  Receive Date: 20150916
  Receipt Date: 20150929
  Transmission Date: 20151125
  Serious: Yes (Other)
  Sender: FDA-Public Use
  Company Number: US-MDT-ADR-2015-01795

PATIENT
  Age: 62 Year
  Sex: Male

DRUGS (2)
  1. BACLOFEN INTRATHECAL - 3200 MCG/ML [Suspect]
     Active Substance: BACLOFEN
     Dosage: 1897.8 MCG/DAY
  2. FENTANYL INTRATHECAL - 3200 MCG/ML [Suspect]
     Active Substance: FENTANYL
     Dosage: 1897.8 MCG/DAY

REACTIONS (3)
  - Agitation [None]
  - Asthenia [None]
  - Pain [None]
